FAERS Safety Report 13358313 (Version 3)
Quarter: 2018Q2

REPORT INFORMATION
  Report Type: Report from Study
  Country: None (occurrence: US)
  Receive Date: 20170322
  Receipt Date: 20180505
  Transmission Date: 20180711
  Serious: Yes (Other)
  Sender: FDA-Public Use
  Company Number: US-ABBVIE-17K-163-1911537-00

PATIENT
  Sex: Female

DRUGS (2)
  1. HUMIRA [Suspect]
     Active Substance: ADALIMUMAB
     Indication: PSORIATIC ARTHROPATHY
     Route: 058
  2. HUMIRA [Suspect]
     Active Substance: ADALIMUMAB
     Route: 058

REACTIONS (10)
  - Pain [Not Recovered/Not Resolved]
  - Fibromyalgia [Unknown]
  - Psoriatic arthropathy [Not Recovered/Not Resolved]
  - Musculoskeletal pain [Not Recovered/Not Resolved]
  - Neck mass [Unknown]
  - Fall [Recovered/Resolved]
  - Fall [Recovering/Resolving]
  - Mobility decreased [Unknown]
  - Multiple fractures [Unknown]
  - Swelling [Unknown]

NARRATIVE: CASE EVENT DATE: 2016
